FAERS Safety Report 9877829 (Version 1)
Quarter: 2014Q1

REPORT INFORMATION
  Report Type: Spontaneous
  Country: US (occurrence: US)
  Receive Date: 20140206
  Receipt Date: 20140206
  Transmission Date: 20141002
  Serious: Yes (Hospitalization)
  Sender: FDA-Public Use
  Company Number: US-NOVOPROD-399253

PATIENT
  Age: 57 Year
  Sex: Female

DRUGS (4)
  1. NOVOLOG FLEXPEN [Suspect]
     Indication: TYPE 2 DIABETES MELLITUS
     Route: 058
  2. NOVOLOG FLEXPEN [Suspect]
     Route: 058
  3. NOVOLOG FLEXPEN [Suspect]
     Route: 058
  4. NOVOLOG FLEXPEN [Suspect]
     Route: 058

REACTIONS (3)
  - Hypotension [Recovered/Resolved]
  - Device malfunction [Not Recovered/Not Resolved]
  - Blood glucose increased [Not Recovered/Not Resolved]
